FAERS Safety Report 7402955-X (Version None)
Quarter: 2011Q1

REPORT INFORMATION
  Report Type: 
  Country: None (occurrence: None)
  Receive Date: 20110331
  Receipt Date: 20110318
  Transmission Date: 20110831
  Serious: Yes (Other)
  Sender: FDA-Public Use
  Company Number: AUR-APL-2011-01031

PATIENT
  Age: 77 Year
  Sex: Female

DRUGS (9)
  1. CIMETIDINE [Concomitant]
  2. PINDOLOL [Concomitant]
  3. ASPIRIN [Concomitant]
  4. ISOORBIDE MONONITRATE [Concomitant]
  5. CIPROFLOXACIN [Suspect]
     Indication: URINARY TRACT INFECTION
  6. LEVOTHYROXINE SODIUM [Concomitant]
  7. FUROSEMIDE [Concomitant]
  8. NICORANDIL [Concomitant]
  9. SIMVASTATIN [Suspect]
     Dosage: 40MG

REACTIONS (11)
  - RHABDOMYOLYSIS [None]
  - HAEMOGLOBIN DECREASED [None]
  - MUSCULAR WEAKNESS [None]
  - MYALGIA [None]
  - DRUG INTERACTION [None]
  - BLOOD PRESSURE SYSTOLIC INCREASED [None]
  - DYSSTASIA [None]
  - URINARY TRACT INFECTION [None]
  - BLOOD URINE PRESENT [None]
  - CHROMATURIA [None]
  - BLOOD ALKALINE PHOSPHATASE INCREASED [None]
